FAERS Safety Report 11795857 (Version 2)
Quarter: 2015Q4

REPORT INFORMATION
  Report Type: Spontaneous
  Country: US (occurrence: US)
  Receive Date: 20151203
  Receipt Date: 20151203
  Transmission Date: 20160305
  Serious: No
  Sender: FDA-Public Use
  Company Number: US-HOSPIRA-2788461

PATIENT
  Age: 68 Year
  Sex: Female
  Weight: 62 kg

DRUGS (1)
  1. CARBOPLATIN. [Suspect]
     Active Substance: CARBOPLATIN
     Indication: BREAST CANCER
     Dosage: NOT REPORTED
     Route: 042
     Dates: start: 201410

REACTIONS (9)
  - Tooth erosion [Not Recovered/Not Resolved]
  - Nail discolouration [Recovering/Resolving]
  - Nail disorder [Recovering/Resolving]
  - Psychiatric symptom [Recovering/Resolving]
  - Abulia [Recovering/Resolving]
  - Anxiety [Recovering/Resolving]
  - Joint swelling [Not Recovered/Not Resolved]
  - Gingival recession [Not Recovered/Not Resolved]
  - Insomnia [Recovered/Resolved]

NARRATIVE: CASE EVENT DATE: 201412
